FAERS Safety Report 13328250 (Version 1)
Quarter: 2017Q1

REPORT INFORMATION
  Report Type: Spontaneous
  Country: US (occurrence: US)
  Receive Date: 20170310
  Receipt Date: 20170310
  Transmission Date: 20170428
  Serious: Yes (Disabling)
  Sender: FDA-Public Use
  Company Number: None

PATIENT
  Age: 49 Year
  Sex: Female
  Weight: 96.75 kg

DRUGS (21)
  1. CIPROFLOXIN, 500MG [Suspect]
     Active Substance: CIPROFLOXACIN
     Indication: KIDNEY INFECTION
     Dosage: ?          QUANTITY:1 TABLET(S);?
     Route: 048
     Dates: start: 20161215, end: 20161221
  2. SELENIUM [Concomitant]
     Active Substance: SELENIUM
  3. MAGNESIUM [Concomitant]
     Active Substance: MAGNESIUM
  4. PROBIOTICS [Concomitant]
     Active Substance: PROBIOTICS NOS
  5. VITAMIN B COMPLEX [Concomitant]
     Active Substance: CYANOCOBALAMIN\DEXPANTHENOL\NIACINAMIDE\PYRIDOXINE HYDROCHLORIDE\RIBOFLAVIN 5^-PHOSPHATE SODIUM\THIAMINE HYDROCHLORIDE\VITAMIN B COMPLEX
  6. KRILL OIL [Concomitant]
     Active Substance: DIETARY SUPPLEMENT
  7. TRYPTOPHAN [Concomitant]
     Active Substance: TRYPTOPHAN
  8. PASSION FLOWER [Concomitant]
     Active Substance: PASSIFLORA INCARNATA FLOWER
  9. ZINC. [Concomitant]
     Active Substance: ZINC
  10. DIGESTIVE ENZYMES [Concomitant]
     Active Substance: UNSPECIFIED INGREDIENT
  11. PROPRANOLOL [Concomitant]
     Active Substance: PROPRANOLOL HYDROCHLORIDE
  12. VITAMIN D3 [Concomitant]
     Active Substance: CHOLECALCIFEROL
  13. TURMERIC [Concomitant]
     Active Substance: TURMERIC
  14. HOLY BASIL/TULSI [Concomitant]
  15. PROGESTERONE CREAM [Concomitant]
     Active Substance: PROGESTERONE
  16. NATURAL PROGESTERONE DIM GABA [Concomitant]
  17. POTASSIUM [Concomitant]
     Active Substance: POTASSIUM
  18. MULTI-MINERAL [Concomitant]
  19. K2 [Concomitant]
     Active Substance: JWH-018
  20. METHIMAZOLE. [Concomitant]
     Active Substance: METHIMAZOLE
  21. ARGININE + CITRULINE [Concomitant]

REACTIONS (14)
  - Paraesthesia [None]
  - Sleep disorder [None]
  - Nightmare [None]
  - Anger [None]
  - Panic attack [None]
  - Pain in extremity [None]
  - Palpitations [None]
  - Hyperthyroidism [None]
  - Depression [None]
  - Nervousness [None]
  - Tendon pain [None]
  - Anxiety [None]
  - Gait disturbance [None]
  - Fear [None]

NARRATIVE: CASE EVENT DATE: 20161215
